FAERS Safety Report 15075173 (Version 1)
Quarter: 2018Q2

REPORT INFORMATION
  Report Type: Spontaneous
  Country: US (occurrence: US)
  Receive Date: 20180627
  Receipt Date: 20180627
  Transmission Date: 20180711
  Serious: Yes (Other)
  Sender: FDA-Public Use
  Company Number: US-SAOL THERAPEUTICS-2017SAO01459

PATIENT
  Age: 15 Year
  Sex: Male

DRUGS (3)
  1. LIORESAL [Suspect]
     Active Substance: BACLOFEN
     Dosage: 300 ?G, \DAY
     Route: 037
  2. LIORESAL [Suspect]
     Active Substance: BACLOFEN
     Indication: MUSCLE SPASTICITY
     Dosage: 921 ?G, \DAY
     Route: 037
  3. LIORESAL [Suspect]
     Active Substance: BACLOFEN
     Dosage: 156.5 ?G, \DAY
     Route: 037
     Dates: start: 20171206

REACTIONS (7)
  - Drug withdrawal syndrome [Unknown]
  - Feeling abnormal [Unknown]
  - Complication associated with device [Recovered/Resolved]
  - Unevaluable event [Unknown]
  - Excessive granulation tissue [Recovered/Resolved]
  - Hyperhidrosis [Unknown]
  - Muscle spasticity [Unknown]

NARRATIVE: CASE EVENT DATE: 2017
